FAERS Safety Report 9034285 (Version 2)
Quarter: 2013Q4

REPORT INFORMATION
  Report Type: Report from Study
  Country: BR (occurrence: BR)
  Receive Date: 20130128
  Receipt Date: 20131227
  Transmission Date: 20140711
  Serious: Yes (Other)
  Sender: FDA-Public Use
  Company Number: BR-AMGEN-BRACT2011069376

PATIENT
  Age: 74 Year
  Sex: Male
  Weight: 93 kg

DRUGS (6)
  1. ETANERCEPT [Suspect]
     Indication: RHEUMATOID ARTHRITIS
     Dosage: 50 MG, 1X/WEEK
     Route: 058
     Dates: start: 200907, end: 201204
  2. ETANERCEPT [Suspect]
     Dosage: STRENGTH 25MG FOR 6 MONTHS
     Route: 065
  3. ETANERCEPT [Suspect]
     Dosage: 50 MG, ONCE WEEKLY
     Route: 058
     Dates: start: 201111, end: 201207
  4. ETANERCEPT [Suspect]
     Dosage: 50 MG, QWK
     Route: 058
  5. VOLTAREN                           /00372301/ [Concomitant]
     Indication: ANTIINFLAMMATORY THERAPY
     Dosage: UNK
  6. ATENOLOL [Concomitant]
     Indication: BLOOD PRESSURE ABNORMAL
     Dosage: UNK
     Dates: start: 2006

REACTIONS (3)
  - Pyrexia [Unknown]
  - Arthropathy [Unknown]
  - Kidney infection [Unknown]
